FAERS Safety Report 6641507-6 (Version None)
Quarter: 2010Q1

REPORT INFORMATION
  Report Type: 
  Country: None (occurrence: None)
  Receive Date: 20100317
  Receipt Date: 20100317
  Transmission Date: 20100710
  Serious: Yes (Other)
  Sender: FDA-Public Use
  Company Number: None

PATIENT
  Age: 55 Year
  Sex: Female

DRUGS (1)
  1. GADOBENATE DIMEGLUMINE [Suspect]
     Indication: SCAN WITH CONTRAST
     Dosage: 8ML ONCE IV
     Route: 042
     Dates: start: 20100105

REACTIONS (1)
  - URTICARIA [None]
